FAERS Safety Report 4451633-8 (Version None)
Quarter: 2004Q3

REPORT INFORMATION
  Report Type: 
  Country: None (occurrence: None)
  Receive Date: 20040915
  Receipt Date: 20040901
  Transmission Date: 20050211
  Serious: No
  Sender: FDA-Public Use
  Company Number: 04H-008-0272202-00

PATIENT
  Sex: 0

DRUGS (3)
  1. DEMEROL [Suspect]
     Indication: ANALGESIC EFFECT
     Dosage: INTRAVENOUS
     Route: 042
  2. MORPHINE SULFATE [Suspect]
     Indication: ANALGESIC EFFECT
     Dosage: 1-2 MG, INTRAVENOUS BOLUS
     Route: 040
  3. NITROUS OXIDE [Concomitant]

REACTIONS (2)
  - MYOCLONUS [None]
  - NEUROTOXICITY [None]
